FAERS Safety Report 7321469-9 (Version None)
Quarter: 2011Q1

REPORT INFORMATION
  Report Type: 
  Country: None (occurrence: None)
  Receive Date: 20110228
  Receipt Date: 20100513
  Transmission Date: 20110831
  Serious: Yes (Other)
  Sender: FDA-Public Use
  Company Number: US-PFIZER INC-2005118837

PATIENT
  Sex: Female
  Weight: 47.619 kg

DRUGS (5)
  1. GEODON [Suspect]
     Indication: DELUSIONAL PERCEPTION
  2. GEODON [Suspect]
     Indication: SCHIZOPHRENIA
     Dosage: 40 MG, 2X/DAY
     Route: 048
     Dates: start: 20020101
  3. BENZTROPINE MESYLATE [Suspect]
     Indication: MUSCLE TWITCHING
     Dosage: 1 MG, 1X/DAY
     Dates: start: 20100402
  4. CLONAZEPAM [Concomitant]
     Dosage: UNK
  5. HYOSCYAMINE [Concomitant]
     Route: 048

REACTIONS (3)
  - TARDIVE DYSKINESIA [None]
  - DEPRESSION [None]
  - DRY MOUTH [None]
